FAERS Safety Report 5452088-7 (Version None)
Quarter: 2007Q3

REPORT INFORMATION
  Report Type: 
  Country: None (occurrence: None)
  Receive Date: 20070803
  Receipt Date: 20070607
  Transmission Date: 20080115
  Serious: Yes (Other)
  Sender: FDA-Public Use
  Company Number: SPV1-2007-02664

PATIENT
  Sex: Male
  Weight: 74.7 kg

DRUGS (2)
  1. DAYTRANA [Suspect]
     Indication: ATTENTION DEFICIT/HYPERACTIVITY DISORDER
     Dosage: 10 MG, DAILY, TRANSDERMAL; 10+14 MG DAILY, TRANSDERMAL
     Route: 062
     Dates: start: 20070426, end: 20070501
  2. DAYTRANA [Suspect]
     Indication: ATTENTION DEFICIT/HYPERACTIVITY DISORDER
     Dosage: 10 MG, DAILY, TRANSDERMAL; 10+14 MG DAILY, TRANSDERMAL
     Route: 062
     Dates: start: 20070501

REACTIONS (3)
  - APPLICATION SITE BLEEDING [None]
  - APPLICATION SITE EXFOLIATION [None]
  - PHARMACEUTICAL PRODUCT COMPLAINT [None]
